FAERS Safety Report 24293887 (Version 1)
Quarter: 2024Q3

REPORT INFORMATION
  Report Type: Spontaneous
  Country: US (occurrence: None)
  Receive Date: 20240906
  Receipt Date: 20240906
  Transmission Date: 20241017
  Serious: No
  Sender: DOMPE FARMACEUTICI
  Company Number: US-FARMAPROD-202403-0742

PATIENT
  Sex: Female

DRUGS (21)
  1. OXERVATE [Suspect]
     Active Substance: CENEGERMIN-BKBJ
     Indication: Neurotrophic keratopathy
     Route: 047
     Dates: start: 20240227
  2. MELATONIN [Concomitant]
     Active Substance: MELATONIN
  3. BISACODYL [Concomitant]
     Active Substance: BISACODYL
     Route: 054
  4. ATORVASTATIN CALCIUM [Concomitant]
     Active Substance: ATORVASTATIN CALCIUM
  5. INSULIN LISPRO [Concomitant]
     Active Substance: INSULIN LISPRO
     Dosage: 100/ML VIAL
  6. ALBUTEROL SULFATE [Concomitant]
     Active Substance: ALBUTEROL SULFATE
     Dosage: HYDROFLUOROALKANE, AEROSOL WITH ADAPTER.
  7. CARVEDILOL [Concomitant]
     Active Substance: CARVEDILOL
  8. SIMBRINZA [Concomitant]
     Active Substance: BRIMONIDINE TARTRATE\BRINZOLAMIDE
     Dosage: 1 %-0.2 %
  9. ACETAMINOPHEN [Concomitant]
     Active Substance: ACETAMINOPHEN
  10. ASPIRIN [Concomitant]
     Active Substance: ASPIRIN
  11. CEPHALEXIN [Concomitant]
     Active Substance: CEPHALEXIN
  12. OFLOXACIN [Concomitant]
     Active Substance: OFLOXACIN
  13. LIDOCAINE [Concomitant]
     Active Substance: LIDOCAINE
  14. LOSARTAN POTASSIUM [Concomitant]
     Active Substance: LOSARTAN POTASSIUM
  15. LANTUS SOLOSTAR [Concomitant]
     Active Substance: INSULIN GLARGINE
     Dosage: INSULIN PEN 100/ML
  16. FUROSEMIDE [Concomitant]
     Active Substance: FUROSEMIDE
  17. POLYETHYLENE GLYCOL 3350 [Concomitant]
     Active Substance: POLYETHYLENE GLYCOL 3350
  18. CYCLOSPORINE IN KLARITY [Concomitant]
     Dosage: 0.1%-0.25%
  19. INSULIN GLARGINE-YFGN [Concomitant]
     Active Substance: INSULIN GLARGINE-YFGN
  20. ANORO ELLIPTA [Concomitant]
     Active Substance: UMECLIDINIUM BROMIDE\VILANTEROL TRIFENATATE
     Dosage: 62.5-25MCG BLISTER WITH DEVICE
  21. LATANOPROST [Concomitant]
     Active Substance: LATANOPROST

REACTIONS (3)
  - Accidental overdose [Recovered/Resolved]
  - Device use issue [Unknown]
  - Eye pain [Unknown]
